FAERS Safety Report 9239413 (Version 1)
Quarter: 2013Q2

REPORT INFORMATION
  Report Type: Spontaneous
  Country: US (occurrence: US)
  Receive Date: 20130418
  Receipt Date: 20130418
  Transmission Date: 20140414
  Serious: No
  Sender: FDA-Public Use
  Company Number: US-TEVA-398042USA

PATIENT
  Sex: Male

DRUGS (2)
  1. PROAIR HFA [Suspect]
     Indication: ASTHMA
     Dosage: 2 PUFFS EVERY 4 HOURS AS NEEDED
     Dates: end: 201304
  2. PROAIR HFA [Suspect]
     Indication: HYPERSENSITIVITY

REACTIONS (7)
  - Dyspnoea [Unknown]
  - Drug ineffective [Unknown]
  - Overdose [Unknown]
  - Amnesia [Unknown]
  - Memory impairment [Unknown]
  - Feeling abnormal [Not Recovered/Not Resolved]
  - Incorrect dose administered [Unknown]
